FAERS Safety Report 4800709-1 (Version None)
Quarter: 2005Q4

REPORT INFORMATION
  Report Type: 
  Country: None (occurrence: None)
  Receive Date: 20051017
  Receipt Date: 20051005
  Transmission Date: 20060501
  Serious: Yes (Disabling)
  Sender: FDA-Public Use
  Company Number: US-MERCK-0510USA03421

PATIENT
  Age: 42 Year
  Sex: Male
  Weight: 120 kg

DRUGS (3)
  1. VIOXX [Suspect]
     Indication: ARTHRITIS
     Route: 048
  2. VIOXX [Suspect]
     Route: 048
  3. [THERAPY UNSPECIFIED] [Concomitant]
     Route: 048

REACTIONS (4)
  - ADRENAL DISORDER [None]
  - CARDIOMEGALY [None]
  - HYPERTENSION [None]
  - RENAL FAILURE [None]
